FAERS Safety Report 13390536 (Version 1)
Quarter: 2017Q1

REPORT INFORMATION
  Report Type: Spontaneous
  Country: GB (occurrence: GB)
  Receive Date: 20170331
  Receipt Date: 20170331
  Transmission Date: 20170429
  Serious: Yes (Other)
  Sender: FDA-Public Use
  Company Number: GB-AUROBINDO-AUR-APL-2017-31845

PATIENT

DRUGS (1)
  1. LINEZOLID. [Suspect]
     Active Substance: LINEZOLID
     Indication: ENTEROCOCCAL INFECTION
     Dosage: 600MG DILUTED IN 300ML NORMAL SALINE. 250 ML WAS ADMINSTERED INTRAVENOUSLY AND 50ML INTO AORTIC SAC
     Route: 042

REACTIONS (2)
  - Wrong technique in product usage process [Recovered/Resolved]
  - Bone marrow failure [Recovered/Resolved]
